FAERS Safety Report 7277261-7 (Version None)
Quarter: 2011Q1

REPORT INFORMATION
  Report Type: 
  Country: None (occurrence: None)
  Receive Date: 20110202
  Receipt Date: 20110202
  Transmission Date: 20110831
  Serious: Yes (Hospitalization, Other)
  Sender: FDA-Public Use
  Company Number: None

PATIENT
  Age: 80 Year
  Sex: Male

DRUGS (1)
  1. AMIODARONE [Suspect]
     Dosage: 200 MG PO BID
     Dates: start: 20100826, end: 20101003

REACTIONS (4)
  - HYPOTHYROIDISM [None]
  - METABOLIC ENCEPHALOPATHY [None]
  - CONDITION AGGRAVATED [None]
  - DEMENTIA [None]
